FAERS Safety Report 5923860-1 (Version None)
Quarter: 2008Q4

REPORT INFORMATION
  Report Type: 
  Country: None (occurrence: None)
  Receive Date: 20081015
  Receipt Date: 20081007
  Transmission Date: 20090506
  Serious: Yes (Hospitalization)
  Sender: FDA-Public Use
  Company Number: MSTR-NO-0809S-0069

PATIENT
  Age: 53 Year
  Sex: Male

DRUGS (5)
  1. METASTRON [Suspect]
     Indication: METASTATIC PAIN
     Dosage: 101 MBQ, SINLE DOSE, I.V.
     Route: 041
     Dates: start: 20080909, end: 20080909
  2. DOCETACEL (TAXOTERE) [Concomitant]
  3. CISPLATIN [Concomitant]
  4. TS-1 [Concomitant]
  5. IRINOTECAN HCL [Concomitant]

REACTIONS (1)
  - BONE PAIN [None]
